FAERS Safety Report 5061472-5 (Version None)
Quarter: 2006Q3

REPORT INFORMATION
  Report Type: 
  Country: None (occurrence: None)
  Receive Date: 20060719
  Receipt Date: 20060719
  Transmission Date: 20061208
  Serious: Yes (Other)
  Sender: FDA-Public Use
  Company Number: None

PATIENT
  Age: 71 Year
  Sex: Male
  Weight: 111.1313 kg

DRUGS (4)
  1. ATENOLOL [Suspect]
     Dosage: 25MG X 1 PO
     Route: 048
  2. CAPTOPRIL [Suspect]
     Dosage: 25 MG X 1 PO
     Route: 048
  3. CLONIDINE [Suspect]
     Dosage: 0.3 MG PO X 1
     Route: 048
  4. CLONAZEPAM [Suspect]
     Dosage: 1 MG PO X 1
     Route: 048

REACTIONS (5)
  - CARDIO-RESPIRATORY ARREST [None]
  - DEPRESSION [None]
  - HYPOTENSION [None]
  - LOSS OF CONSCIOUSNESS [None]
  - SUICIDAL IDEATION [None]
